FAERS Safety Report 18343292 (Version 1)
Quarter: 2020Q4

REPORT INFORMATION
  Report Type: Report from Study
  Country: BR (occurrence: BR)
  Receive Date: 20201005
  Receipt Date: 20201005
  Transmission Date: 20210113
  Serious: Yes (Hospitalization)
  Sender: FDA-Public Use
  Company Number: PHHY2017BR080865

PATIENT
  Age: 69 Year
  Sex: Female
  Weight: 52 kg

DRUGS (6)
  1. AZACITIDINE. [Suspect]
     Active Substance: AZACITIDINE
     Dosage: 115 MG, QD
     Route: 058
     Dates: start: 20170327, end: 20170327
  2. AZACITIDINE. [Suspect]
     Active Substance: AZACITIDINE
     Indication: MYELODYSPLASTIC SYNDROME
     Dosage: 115 MG, QD
     Route: 058
     Dates: start: 20160413
  3. AZACITIDINE. [Suspect]
     Active Substance: AZACITIDINE
     Dosage: 115 MG, QD
     Route: 058
     Dates: start: 20161017, end: 20161023
  4. AZACITIDINE. [Suspect]
     Active Substance: AZACITIDINE
     Dosage: 115 MG, QD
     Route: 058
     Dates: end: 20170529
  5. AZACITIDINE. [Suspect]
     Active Substance: AZACITIDINE
     Dosage: 115 MG, QD
     Route: 058
     Dates: start: 20160608, end: 20160614
  6. ELTROMBOPAG [Suspect]
     Active Substance: ELTROMBOPAG
     Indication: MYELODYSPLASTIC SYNDROME
     Dosage: UNK
     Route: 048

REACTIONS (6)
  - Febrile neutropenia [Not Recovered/Not Resolved]
  - Blast cell count increased [Not Recovered/Not Resolved]
  - Febrile neutropenia [Recovered/Resolved]
  - Hypotension [Recovered/Resolved]
  - Pyrexia [Not Recovered/Not Resolved]
  - Febrile neutropenia [Recovered/Resolved]

NARRATIVE: CASE EVENT DATE: 20160628
